FAERS Safety Report 10015464 (Version 2)
Quarter: 2014Q2

REPORT INFORMATION
  Report Type: Spontaneous
  Country: US (occurrence: US)
  Receive Date: 20140317
  Receipt Date: 20140401
  Transmission Date: 20141212
  Serious: No
  Sender: FDA-Public Use
  Company Number: US-009507513-1403USA002685

PATIENT
  Age: 61 Year
  Sex: Female

DRUGS (15)
  1. PEGINTRON [Suspect]
     Indication: HEPATITIS C
     Dosage: 0.5 ML, QW
     Route: 058
     Dates: start: 20140228
  2. PEGINTRON [Suspect]
     Dosage: 1 DF, QW
     Route: 058
     Dates: start: 20100101, end: 20100507
  3. REBETOL [Suspect]
     Indication: HEPATITIS C
     Dosage: 3 DF, BID
     Route: 048
     Dates: start: 20140228
  4. REBETOL [Suspect]
     Dosage: 1 DF, BID
     Route: 048
     Dates: start: 20100101, end: 20100507
  5. ALBUTEROL SULFATE [Concomitant]
  6. ECOTRIN [Concomitant]
  7. IRON (UNSPECIFIED) [Concomitant]
     Dosage: 1 DF, QD
  8. GASTROINTESTINAL PREPARATIONS (UNSPECIFIED) [Concomitant]
  9. HYDROCHLOROTHIAZIDE [Concomitant]
     Dosage: 1 DF, QD
  10. KONSYL FIBER [Concomitant]
  11. SOVALDI [Concomitant]
     Dosage: 1 DF, QD
  12. LISINOPRIL [Concomitant]
     Dosage: 1 DF, QD
  13. LEVOTHYROXINE SODIUM [Concomitant]
     Dosage: 1 DF, QD
  14. OMEGA-3 MARINE TRIGLYCERIDES [Concomitant]
     Dosage: 2 DF, BID
  15. DOCUSATE SODIUM [Concomitant]
     Dosage: 1 DF, QD

REACTIONS (14)
  - Injection site extravasation [Unknown]
  - Pain [Unknown]
  - Mood swings [Unknown]
  - Back pain [Unknown]
  - Pain [Unknown]
  - Chest pain [Unknown]
  - Insomnia [Unknown]
  - Headache [Unknown]
  - Pyrexia [Unknown]
  - Chills [Unknown]
  - Pain [Unknown]
  - Pyrexia [Unknown]
  - Hypersensitivity [Unknown]
  - Rash [Unknown]
